FAERS Safety Report 9144726 (Version 3)
Quarter: 2013Q2

REPORT INFORMATION
  Report Type: Spontaneous
  Country: US (occurrence: US)
  Receive Date: 20130306
  Receipt Date: 20130401
  Transmission Date: 20140414
  Serious: Yes (Death)
  Sender: FDA-Public Use
  Company Number: US-UCBSA-079678

PATIENT
  Age: 69 Year
  Sex: Female
  Weight: 50.3 kg

DRUGS (19)
  1. CIMZIA [Suspect]
     Indication: RHEUMATOID ARTHRITIS
     Dosage: 2X200 MG KIT
     Route: 058
     Dates: start: 20121031
  2. CIMZIA [Suspect]
     Indication: RHEUMATOID ARTHRITIS
     Route: 058
     Dates: end: 20130201
  3. FOLIC ACID [Concomitant]
     Route: 048
  4. ALPRAZOLAM [Concomitant]
  5. BISOPROLOL FUMARATE [Concomitant]
  6. LORTAB [Concomitant]
     Indication: PAIN
     Dosage: 7.5-750 MG, 1 TABLET AS NEEDED EVERY 6 HOURS
  7. LORTAB [Concomitant]
     Indication: PAIN
  8. LORTAB [Concomitant]
     Indication: PAIN
     Dosage: DOSE INCREASED
  9. CALCIUM [Concomitant]
     Dosage: 1200 MG/DAY
  10. METHOTREXATE [Concomitant]
     Dosage: 2.5 MG, 8 TABLETS ONCE A WEEK
     Route: 048
  11. PREDNISONE [Concomitant]
     Dosage: 5 MG , 1 1/2 TABLET ONCE A DAY WITH FOOD OR MILK
  12. DIGOXIN [Concomitant]
  13. ASPIRIN [Concomitant]
     Dosage: DELAYED RELEASE
  14. ISOSORBIDE DINITRATE-HYDRALAZINE [Concomitant]
     Dosage: 20-37.5 MG, 1 DF AS DIRECTED
  15. TORSEMIDE [Concomitant]
  16. XALANTAN [Concomitant]
     Dosage: 0.005 % SOLUTION, 1 DROP INTO AFFECTED EYE IN THE EVENING
     Route: 047
  17. LISINOPRIL [Concomitant]
     Dosage: UNKNOWN DOSE
  18. VITAMIN D [Concomitant]
     Dosage: 400 UNIT
  19. VITAMIN D [Concomitant]
     Dosage: 800 IU/DAY

REACTIONS (2)
  - Lung neoplasm malignant [Fatal]
  - Sciatica [Unknown]
